FAERS Safety Report 14415159 (Version 1)
Quarter: 2018Q1

REPORT INFORMATION
  Report Type: Spontaneous
  Country: US (occurrence: US)
  Receive Date: 20180118
  Receipt Date: 20180118
  Transmission Date: 20180509
  Serious: No
  Sender: FDA-Public Use
  Company Number: None

PATIENT
  Age: 65 Year
  Sex: Male

DRUGS (1)
  1. WARFARIN [Suspect]
     Active Substance: WARFARIN
     Indication: DEEP VEIN THROMBOSIS
     Route: 048

REACTIONS (6)
  - Anticoagulation drug level above therapeutic [None]
  - Hypoxia [None]
  - Cardiogenic shock [None]
  - Respiratory failure [None]
  - Gastric haemorrhage [None]
  - Chest pain [None]

NARRATIVE: CASE EVENT DATE: 20170313
